FAERS Safety Report 8769832 (Version 2)
Quarter: 2013Q2

REPORT INFORMATION
  Report Type: Report from Study
  Country: JP (occurrence: JP)
  Receive Date: 20120905
  Receipt Date: 20130402
  Transmission Date: 20140414
  Serious: Yes (Hospitalization)
  Sender: FDA-Public Use
  Company Number: JP-009507513-1209JPN000310

PATIENT
  Age: 57 Year
  Sex: Female
  Weight: 53 kg

DRUGS (6)
  1. PEGINTRON [Suspect]
     Indication: CHRONIC HEPATITIS C
     Dosage: 80 MICROGRAMS PER WEEK
     Route: 058
     Dates: start: 20120615, end: 20120718
  2. REBETOL [Suspect]
     Indication: CHRONIC HEPATITIS C
     Dosage: 400 MG, QD
     Route: 048
     Dates: start: 20120615, end: 20120720
  3. TELAVIC [Suspect]
     Indication: CHRONIC HEPATITIS C
     Dosage: 1500 MG, QD
     Route: 048
     Dates: start: 20120615, end: 20120720
  4. URSO [Concomitant]
     Indication: CHRONIC HEPATITIS C
     Dosage: 600 MG, QD
     Route: 048
  5. ZANTAC [Concomitant]
     Indication: GASTRITIS
     Dosage: 300 MG, QD
     Route: 048
     Dates: end: 20120625
  6. RIZE [Concomitant]
     Indication: PALPITATIONS
     Dosage: 20 MG, QD
     Route: 048
     Dates: end: 20120831

REACTIONS (1)
  - Dizziness [Recovered/Resolved]
